FAERS Safety Report 21573210 (Version 1)
Quarter: 2022Q4

REPORT INFORMATION
  Report Type: Spontaneous
  Country: US (occurrence: US)
  Receive Date: 20221109
  Receipt Date: 20221109
  Transmission Date: 20230113
  Serious: Yes (Death, Hospitalization, Other)
  Sender: FDA-Public Use
  Company Number: US-BAYER-2022A155122

PATIENT
  Age: 43 Year
  Sex: Male

DRUGS (1)
  1. BILTRICIDE [Suspect]
     Active Substance: PRAZIQUANTEL
     Route: 048

REACTIONS (4)
  - Arthropod sting [Fatal]
  - Amnesia [None]
  - Retinal disorder [Recovering/Resolving]
  - Eye disorder [None]
